FAERS Safety Report 9574159 (Version 3)
Quarter: 2013Q4

REPORT INFORMATION
  Report Type: Spontaneous
  Country: US (occurrence: US)
  Receive Date: 20131001
  Receipt Date: 20131010
  Transmission Date: 20140711
  Serious: Yes (Hospitalization)
  Sender: FDA-Public Use
  Company Number: US-DENDREON CORPORATION-2013PROUSA03160

PATIENT
  Age: 64 Year
  Sex: Male
  Weight: 89.8 kg

DRUGS (4)
  1. PROVENGE [Suspect]
     Indication: PROSTATE CANCER METASTATIC
     Dosage: 250 ML, SINGLE
     Route: 042
     Dates: start: 20130830, end: 20130830
  2. PROVENGE [Suspect]
     Dosage: 250 ML, SINGLE
     Route: 042
     Dates: start: 20130913, end: 20130913
  3. PREDNISONE [Concomitant]
  4. TORADOL [Concomitant]

REACTIONS (8)
  - Dehydration [Recovered/Resolved]
  - Confusional state [Unknown]
  - Asthenia [Unknown]
  - General physical health deterioration [None]
  - Body temperature increased [Unknown]
  - Haemoglobin decreased [Recovered/Resolved]
  - Prostatic specific antigen increased [Not Recovered/Not Resolved]
  - Pain [Unknown]
